FAERS Safety Report 5154071-8 (Version None)
Quarter: 2006Q4

REPORT INFORMATION
  Report Type: 
  Country: None (occurrence: None)
  Receive Date: 20061116
  Receipt Date: 20061116
  Transmission Date: 20070319
  Serious: Yes (Hospitalization)
  Sender: FDA-Public Use
  Company Number: None

PATIENT
  Age: 50 Year
  Sex: Male

DRUGS (2)
  1. KEPPRA [Suspect]
     Indication: CONVULSION
     Dosage: 500 MG TAB Q 12
     Dates: start: 20050414, end: 20050415
  2. KEPPRA [Suspect]
     Indication: SUBSTANCE ABUSE
     Dosage: 500 MG TAB Q 12
     Dates: start: 20050414, end: 20050415

REACTIONS (1)
  - THROMBOCYTOPENIA [None]
